FAERS Safety Report 19988937 (Version 1)
Quarter: 2021Q4

REPORT INFORMATION
  Report Type: Report from Study
  Country: None (occurrence: US)
  Receive Date: 20211024
  Receipt Date: 20211024
  Transmission Date: 20220303
  Serious: Yes (Other)
  Sender: FDA-Public Use
  Company Number: US-ABBVIE-21K-163-4131448-00

PATIENT
  Age: 56 Year
  Sex: Male

DRUGS (1)
  1. HUMIRA [Suspect]
     Active Substance: ADALIMUMAB
     Indication: Colitis ulcerative
     Route: 058

REACTIONS (5)
  - Skin laceration [Recovering/Resolving]
  - Rib fracture [Recovering/Resolving]
  - Accident [Unknown]
  - Pulmonary contusion [Unknown]
  - Cardiac contusion [Unknown]

NARRATIVE: CASE EVENT DATE: 20211001
